FAERS Safety Report 6458569-1 (Version None)
Quarter: 2009Q4

REPORT INFORMATION
  Report Type: 
  Country: None (occurrence: None)
  Receive Date: 20091126
  Receipt Date: 20091124
  Transmission Date: 20100525
  Serious: Yes (Death, Hospitalization, Other)
  Sender: FDA-Public Use
  Company Number: US-ASTRAZENECA-2007UW09472

PATIENT
  Age: 30889 Day
  Sex: Male

DRUGS (32)
  1. SEROQUEL [Suspect]
     Indication: DEMENTIA
     Route: 048
     Dates: start: 20020904, end: 20040225
  2. SEROQUEL [Suspect]
     Indication: SLEEP DISORDER
     Route: 048
     Dates: start: 20020904, end: 20040225
  3. SEROQUEL [Suspect]
     Dosage: 12.5-25 MG
     Route: 048
     Dates: start: 20020903
  4. SEROQUEL [Suspect]
     Dosage: 12.5-25 MG
     Route: 048
     Dates: start: 20020903
  5. SEROQUEL [Suspect]
     Route: 048
     Dates: start: 20020913
  6. SEROQUEL [Suspect]
     Route: 048
     Dates: start: 20020913
  7. SEROQUEL [Suspect]
     Dosage: 12.5 MG,EVERY MORNING, EVERY NIGHT
     Route: 048
     Dates: start: 20020912
  8. SEROQUEL [Suspect]
     Dosage: 12.5 MG,EVERY MORNING, EVERY NIGHT
     Route: 048
     Dates: start: 20020912
  9. SEROQUEL [Suspect]
     Dosage: 25 MG, EVERY MORNING
     Route: 048
     Dates: start: 20020917
  10. SEROQUEL [Suspect]
     Dosage: 25 MG, EVERY MORNING
     Route: 048
     Dates: start: 20020917
  11. FLOMAX [Concomitant]
  12. DITROPAN [Concomitant]
  13. ARICEPT [Concomitant]
  14. LOPRESSOR [Concomitant]
  15. ZOLOFT [Concomitant]
  16. EFFEXOR XR [Concomitant]
  17. ATIVAN [Concomitant]
  18. HYTRIN [Concomitant]
  19. RISPERDAL [Concomitant]
     Indication: DEMENTIA
     Dosage: 0.25-0.5 MG
     Dates: start: 20020101, end: 20020901
  20. PROTONIX [Concomitant]
  21. LEVOFLOXACIN [Concomitant]
  22. LEVSIN [Concomitant]
  23. FUROSEMIDE [Concomitant]
  24. FINASTERIDE [Concomitant]
  25. DOCUSATE [Concomitant]
  26. FEVERALL [Concomitant]
  27. POTASSIUM CHLORIDE [Concomitant]
  28. VANCOMYCIN HCL [Concomitant]
  29. PREVACID [Concomitant]
  30. SOLU-MEDROL [Concomitant]
  31. CEFEPIME [Concomitant]
  32. LORAZEPAM [Concomitant]

REACTIONS (13)
  - AGITATION [None]
  - ANXIETY DISORDER DUE TO A GENERAL MEDICAL CONDITION [None]
  - BENIGN PROSTATIC HYPERPLASIA [None]
  - DECREASED INTEREST [None]
  - DEHYDRATION [None]
  - DELUSION [None]
  - DEMENTIA ALZHEIMER'S TYPE [None]
  - DISTURBANCE IN ATTENTION [None]
  - FATIGUE [None]
  - ORTHOSTATIC HYPOTENSION [None]
  - PNEUMONIA ASPIRATION [None]
  - SUICIDAL IDEATION [None]
  - TYPE 2 DIABETES MELLITUS [None]
